FAERS Safety Report 11999467 (Version 1)
Quarter: 2016Q1

REPORT INFORMATION
  Report Type: Spontaneous
  Country: US (occurrence: None)
  Receive Date: 20160203
  Receipt Date: 20160203
  Transmission Date: 20160526
  Serious: No
  Sender: FDA-Public Use
  Company Number: None

PATIENT
  Sex: Male

DRUGS (1)
  1. NICARDIPINE DRIP [Suspect]
     Active Substance: NICARDIPINE

REACTIONS (1)
  - Transcription medication error [None]
